FAERS Safety Report 26084856 (Version 2)
Quarter: 2025Q4

REPORT INFORMATION
  Report Type: Report from Study
  Country: EU (occurrence: EU)
  Receive Date: 20251124
  Receipt Date: 20251226
  Transmission Date: 20260117
  Serious: Yes (Hospitalization)
  Sender: ABBVIE
  Company Number: EU-ABBVIE-6561048

PATIENT
  Age: 68 Year
  Sex: Female

DRUGS (1)
  1. FOSCARBIDOPA\FOSLEVODOPA [Suspect]
     Active Substance: FOSCARBIDOPA\FOSLEVODOPA
     Indication: Parkinson^s disease
     Dosage: LD: UNKNOWN CR: LOW: 0.49ML/H BASE: 0.55ML/H HIGH: 0.56ML/H ED: UNKNOWN
     Route: 058
     Dates: start: 20251103, end: 202511

REACTIONS (2)
  - Cerebrovascular accident [Recovering/Resolving]
  - Memory impairment [Not Recovered/Not Resolved]

NARRATIVE: CASE EVENT DATE: 20250101
